FAERS Safety Report 19168834 (Version 1)
Quarter: 2021Q2

REPORT INFORMATION
  Report Type: Spontaneous
  Country: US (occurrence: US)
  Receive Date: 20210421
  Receipt Date: 20210421
  Transmission Date: 20210717
  Serious: Yes (Other)
  Sender: FDA-Public Use
  Company Number: None

PATIENT
  Age: 80 Year
  Sex: Male
  Weight: 92.25 kg

DRUGS (8)
  1. ENTRESTO [Suspect]
     Active Substance: SACUBITRIL\VALSARTAN
     Indication: BLOOD PRESSURE ABNORMAL
     Dosage: ?          QUANTITY:1 TABLET(S);?
     Route: 048
     Dates: start: 20210410, end: 20210418
  2. POTASSIUM [Concomitant]
     Active Substance: POTASSIUM
  3. FINASTERIDE. [Concomitant]
     Active Substance: FINASTERIDE
  4. PROPRANOLOL [Concomitant]
     Active Substance: PROPRANOLOL HYDROCHLORIDE
  5. TYLENOL [Concomitant]
     Active Substance: ACETAMINOPHEN
  6. LASIC [Concomitant]
  7. WARFARIN [Concomitant]
     Active Substance: WARFARIN
  8. ANALAPRIL [Concomitant]

REACTIONS (2)
  - Neuropathy peripheral [None]
  - Renal pain [None]

NARRATIVE: CASE EVENT DATE: 20210410
